FAERS Safety Report 9575598 (Version 1)
Quarter: 2013Q4

REPORT INFORMATION
  Report Type: Spontaneous
  Country: US (occurrence: US)
  Receive Date: 20131001
  Receipt Date: 20131001
  Transmission Date: 20140711
  Serious: No
  Sender: FDA-Public Use
  Company Number: US-AMGEN-USASP2012083689

PATIENT
  Sex: Female
  Weight: 102.4 kg

DRUGS (11)
  1. ENBREL [Suspect]
     Indication: RHEUMATOID ARTHRITIS
     Dosage: 50 MG, 2 TIMES/WK
     Route: 058
  2. LIPITOR [Concomitant]
     Dosage: 10 MG, UNK
  3. DIOVAN HCT [Concomitant]
     Dosage: 160/25 MG, UNK
  4. PROAIR HFA [Concomitant]
     Dosage: UNK
  5. NASONEX [Concomitant]
     Dosage: 50 MUG/AC, UNK
  6. DUONEB [Concomitant]
     Dosage: UNK
  7. PREDNISONE [Concomitant]
     Dosage: 10 MG, UNK
  8. SPIRIVA HANDIHALER [Concomitant]
     Dosage: UNK
  9. PREFEST [Concomitant]
     Dosage: UNK
  10. ADVAIR [Concomitant]
     Dosage: 500/50
  11. ZYRTEC [Concomitant]
     Dosage: 10 MG, UNK

REACTIONS (2)
  - Skin ulcer [Unknown]
  - Injection site reaction [Unknown]
